FAERS Safety Report 16543042 (Version 2)
Quarter: 2019Q3

REPORT INFORMATION
  Report Type: Spontaneous
  Country: PT (occurrence: PT)
  Receive Date: 20190709
  Receipt Date: 20190720
  Transmission Date: 20191004
  Serious: Yes (Hospitalization, Other)
  Sender: FDA-Public Use
  Company Number: PT-AUROBINDO-AUR-APL-2019-037763

PATIENT

DRUGS (5)
  1. CLINDAMYCIN. [Suspect]
     Active Substance: CLINDAMYCIN
     Indication: ANTIBIOTIC THERAPY
     Dosage: UNK
     Route: 065
  2. CEFTRIAXONE. [Suspect]
     Active Substance: CEFTRIAXONE
     Indication: ANTIBIOTIC THERAPY
     Dosage: UNK (4 WEEK)
     Route: 042
  3. FLUCLOXACILIN [Suspect]
     Active Substance: FLUCLOXACILLIN
     Indication: CELLULITIS
     Dosage: UNK
     Route: 048
  4. AMOXICILLIN+CLAVULANIC ACID [Suspect]
     Active Substance: AMOXICILLIN\CLAVULANIC ACID
     Indication: ANTIBIOTIC THERAPY
     Dosage: UNK
     Route: 042
  5. BENZYLPENICILLIN [Suspect]
     Active Substance: PENICILLIN G
     Indication: TONSILLITIS
     Dosage: UNK
     Route: 030

REACTIONS (4)
  - Arthritis bacterial [Recovering/Resolving]
  - Resorption bone increased [Recovering/Resolving]
  - Impaired healing [Recovering/Resolving]
  - Osteomyelitis salmonella [Recovered/Resolved]
